FAERS Safety Report 16655787 (Version 1)
Quarter: 2019Q3

REPORT INFORMATION
  Report Type: Spontaneous
  Country: CN (occurrence: CN)
  Receive Date: 20190801
  Receipt Date: 20190801
  Transmission Date: 20191004
  Serious: Yes (Hospitalization)
  Sender: FDA-Public Use
  Company Number: CN-BAXTER-2019BAX014790

PATIENT
  Age: 62 Year
  Sex: Female
  Weight: 55 kg

DRUGS (4)
  1. 0.9% SODIUM CHLORIDE INJECTION [Suspect]
     Active Substance: SODIUM CHLORIDE
     Indication: MEDICATION DILUTION
     Dosage: DILUENT FOR IFOSFAMIDE INJECTION
     Route: 041
     Dates: start: 20190526, end: 20190529
  2. HOLOXAN [Suspect]
     Active Substance: IFOSFAMIDE
     Indication: OVARIAN CANCER
     Dosage: DILUTED WITH 0.9% SODIUM CHLORIDE INJECTION
     Route: 041
     Dates: start: 20190526, end: 20190529
  3. HOLOXAN [Suspect]
     Active Substance: IFOSFAMIDE
     Dosage: DOSE REINTRODUCED, DILUTED WITH 0.9% SODIUM CHLORIDE INJECTION
     Route: 041
  4. 0.9% SODIUM CHLORIDE INJECTION [Suspect]
     Active Substance: SODIUM CHLORIDE
     Dosage: DOSE REINTRODUCED, DILUENT FOR IFOSFAMIDE INJECTION
     Route: 041

REACTIONS (1)
  - Bone marrow failure [Recovering/Resolving]

NARRATIVE: CASE EVENT DATE: 20190603
